FAERS Safety Report 15758541 (Version 3)
Quarter: 2019Q2

REPORT INFORMATION
  Report Type: Report from Study
  Country: GB (occurrence: GB)
  Receive Date: 20181225
  Receipt Date: 20190401
  Transmission Date: 20190711
  Serious: Yes (Other)
  Sender: FDA-Public Use
  Company Number: PHHY2018GB193542

PATIENT
  Age: 56 Year
  Sex: Female

DRUGS (1)
  1. COSENTYX [Suspect]
     Active Substance: SECUKINUMAB
     Indication: ANKYLOSING SPONDYLITIS
     Dosage: 150 MG, QMO
     Route: 058
     Dates: start: 20180323

REACTIONS (14)
  - Tooth abscess [Unknown]
  - Nasopharyngitis [Recovering/Resolving]
  - Cough [Recovering/Resolving]
  - Oropharyngeal pain [Unknown]
  - Back pain [Unknown]
  - Conjunctivitis [Unknown]
  - Tooth fracture [Unknown]
  - Body temperature increased [Unknown]
  - Musculoskeletal chest pain [Unknown]
  - Rhinorrhoea [Unknown]
  - Fatigue [Unknown]
  - Oral candidiasis [Unknown]
  - Ankylosing spondylitis [Unknown]
  - Neck pain [Unknown]

NARRATIVE: CASE EVENT DATE: 20181205
